FAERS Safety Report 24042247 (Version 1)
Quarter: 2024Q3

REPORT INFORMATION
  Report Type: Spontaneous
  Country: CN (occurrence: CN)
  Receive Date: 20240702
  Receipt Date: 20240702
  Transmission Date: 20241017
  Serious: Yes (Death, Other)
  Sender: IPSEN
  Company Number: CN-IPSEN Group, Research and Development-2024-12996

PATIENT

DRUGS (2)
  1. LANREOTIDE ACETATE [Suspect]
     Active Substance: LANREOTIDE ACETATE
     Indication: Pancreatic neuroendocrine tumour
     Dosage: ONCE EVERY 10 TO 14 DAYS
     Route: 030
  2. LANREOTIDE ACETATE [Suspect]
     Active Substance: LANREOTIDE ACETATE
     Dosage: 80~120MG, ONCE EVERY 10~14 DAYS
     Route: 030

REACTIONS (8)
  - Death [Fatal]
  - Cholelithiasis [Unknown]
  - Diarrhoea [Unknown]
  - Nausea [Unknown]
  - Abdominal distension [Unknown]
  - Off label use [Unknown]
  - Off label use [Unknown]
  - Incorrect route of product administration [Unknown]
